FAERS Safety Report 7256944-9 (Version None)
Quarter: 2011Q1

REPORT INFORMATION
  Report Type: 
  Country: None (occurrence: None)
  Receive Date: 20110129
  Receipt Date: 20100702
  Transmission Date: 20110831
  Serious: No
  Sender: FDA-Public Use
  Company Number: US-ABBOTT-10P-163-0655436-00

PATIENT
  Sex: Female
  Weight: 77.18 kg

DRUGS (3)
  1. ISONIAZID [Concomitant]
     Indication: TUBERCULIN TEST POSITIVE
     Dates: start: 20100201, end: 20100701
  2. HUMIRA [Suspect]
     Indication: PSORIASIS
  3. HUMIRA [Suspect]
     Indication: PSORIATIC ARTHROPATHY
     Dates: start: 20100301, end: 20100701

REACTIONS (1)
  - PSORIASIS [None]
